FAERS Safety Report 4837446-3 (Version None)
Quarter: 2005Q4

REPORT INFORMATION
  Report Type: 
  Country: None (occurrence: None)
  Receive Date: 20051123
  Receipt Date: 20051123
  Transmission Date: 20060501
  Serious: Yes (Other)
  Sender: FDA-Public Use
  Company Number: None

PATIENT
  Age: 54 Year
  Sex: Female
  Weight: 49.8957 kg

DRUGS (1)
  1. SANDOSTATIN LAR [Suspect]

REACTIONS (2)
  - ACCIDENTAL NEEDLE STICK [None]
  - MEDICATION ERROR [None]
